FAERS Safety Report 16869965 (Version 1)
Quarter: 2019Q3

REPORT INFORMATION
  Report Type: Spontaneous
  Country: US (occurrence: US)
  Receive Date: 20190930
  Receipt Date: 20190930
  Transmission Date: 20191005
  Serious: Yes (Hospitalization)
  Sender: FDA-Public Use
  Company Number: US-AMNEAL PHARMACEUTICALS-2019-IPXL-01535

PATIENT
  Age: 64 Year
  Sex: Male

DRUGS (1)
  1. RYTARY [Suspect]
     Active Substance: CARBIDOPA\LEVODOPA
     Indication: PARKINSON^S DISEASE
     Dosage: 2 CAPSULES (EVERY 3 HOURS)
     Route: 048
     Dates: end: 20190907

REACTIONS (3)
  - Tremor [Unknown]
  - Anxiety [Unknown]
  - Adverse event [Unknown]

NARRATIVE: CASE EVENT DATE: 20190907
